FAERS Safety Report 6058115-0 (Version None)
Quarter: 2009Q1

REPORT INFORMATION
  Report Type: 
  Country: None (occurrence: None)
  Receive Date: 20090130
  Receipt Date: 20090116
  Transmission Date: 20090719
  Serious: Yes (Death)
  Sender: FDA-Public Use
  Company Number: US-RANBAXY-2009RR-21361

PATIENT
  Age: 32 Year
  Sex: Male

DRUGS (8)
  1. SERTRALINE [Suspect]
     Indication: COMPLETED SUICIDE
     Route: 048
  2. MARIJUANA [Suspect]
     Indication: COMPLETED SUICIDE
     Route: 048
  3. LITHIUM CARBONATE [Suspect]
     Indication: COMPLETED SUICIDE
     Route: 048
  4. QUETIAPINE FUMARATE [Suspect]
     Indication: COMPLETED SUICIDE
     Route: 048
  5. DIPHENHYDRAMINE HCL [Suspect]
     Indication: COMPLETED SUICIDE
     Route: 048
  6. METHADONE HCL [Suspect]
     Indication: COMPLETED SUICIDE
     Route: 048
  7. HYDROCODONE BITARTRATE AND ACETAMINOPHEN [Suspect]
     Indication: COMPLETED SUICIDE
     Route: 048
  8. CLONAZEPAM [Suspect]
     Indication: COMPLETED SUICIDE
     Route: 048

REACTIONS (1)
  - COMPLETED SUICIDE [None]
